FAERS Safety Report 9215088 (Version 2)
Quarter: 2014Q1

REPORT INFORMATION
  Report Type: Spontaneous
  Country: US (occurrence: US)
  Receive Date: 20130405
  Receipt Date: 20140108
  Transmission Date: 20141002
  Serious: Yes (Other)
  Sender: FDA-Public Use
  Company Number: US-BAYER-2013-041468

PATIENT
  Age: 31 Year
  Sex: Female
  Weight: 83.45 kg

DRUGS (11)
  1. YAZ [Suspect]
     Indication: ACNE
  2. YASMIN [Suspect]
     Indication: ACNE
  3. OCELLA [Suspect]
     Indication: ACNE
  4. PROPRANOLOL [Concomitant]
     Dosage: 80 MG, UNK
  5. PROTONIX [Concomitant]
     Dosage: 40 MG, UNK
  6. CIPROFLOXACIN [Concomitant]
     Dosage: 500 MG, UNK
  7. DIFLUCAN [Concomitant]
     Dosage: 150 MG, UNK
  8. FLUCONAZOLE [Concomitant]
     Dosage: 150 MG, UNK
  9. AZITHROMYCIN [Concomitant]
     Dosage: 250 MG, UNK
     Dates: start: 20091125
  10. EXCEDRIN [CAFFEINE,PARACETAMOL] [Concomitant]
  11. ONDANSETRON [Concomitant]
     Dosage: 4 MG, UNK

REACTIONS (6)
  - Cholecystitis [None]
  - Biliary dyskinesia [None]
  - Injury [None]
  - Pain [None]
  - Pain [None]
  - Off label use [None]
